FAERS Safety Report 13372674 (Version 1)
Quarter: 2017Q1

REPORT INFORMATION
  Report Type: Report from Study
  Country: PL (occurrence: PL)
  Receive Date: 20170327
  Receipt Date: 20170327
  Transmission Date: 20170429
  Serious: No
  Sender: FDA-Public Use
  Company Number: PL-LEO PHARMA-286053

PATIENT
  Sex: Female

DRUGS (2)
  1. PROTOPIC [Suspect]
     Active Substance: TACROLIMUS
     Indication: DERMATITIS ATOPIC
     Dosage: 0.03 %, UNKNOWN FREQ.
     Route: 061
     Dates: start: 2002
  2. PROTOPIC [Suspect]
     Active Substance: TACROLIMUS
     Dosage: 0.03 %, TWICE WEEKLY
     Route: 061
     Dates: start: 2003

REACTIONS (1)
  - Hyperthyroidism [Unknown]
